FAERS Safety Report 5296100-7 (Version None)
Quarter: 2007Q2

REPORT INFORMATION
  Report Type: 
  Country: None (occurrence: None)
  Receive Date: 20070413
  Receipt Date: 20070409
  Transmission Date: 20071010
  Serious: Yes (Hospitalization)
  Sender: FDA-Public Use
  Company Number: AT-AVENTIS-200712859GDDC

PATIENT
  Age: 70 Year
  Sex: Female

DRUGS (14)
  1. DOCETAXEL [Suspect]
     Indication: BREAST CANCER METASTATIC
     Route: 042
     Dates: start: 20070214, end: 20070214
  2. ENOXAPARIN SODIUM [Suspect]
     Indication: CATHETER RELATED COMPLICATION
     Route: 058
     Dates: start: 20070226, end: 20070315
  3. ENOXAPARIN SODIUM [Suspect]
     Indication: VENOUS THROMBOSIS
     Route: 058
     Dates: start: 20070226, end: 20070315
  4. BLINDED BEVACIZUMAB [Suspect]
     Indication: BREAST CANCER METASTATIC
     Route: 042
     Dates: start: 20070214, end: 20070214
  5. ACETYLSALICYLIC ACID SRT [Suspect]
     Dates: end: 20070315
  6. LORNOXICAM [Suspect]
     Dates: end: 20070314
  7. SELOKEN                            /00376902/ [Concomitant]
  8. DANCOR [Concomitant]
     Dates: end: 20070316
  9. ENALAPRIL MALEATE [Concomitant]
  10. ALLOPURINOL [Concomitant]
  11. PANTOLOC                           /01263201/ [Concomitant]
     Dates: end: 20070315
  12. FUROSEMIDE [Concomitant]
  13. TEMESTA                            /00273201/ [Concomitant]
  14. UNKNOWN DRUG [Concomitant]
     Dates: end: 20070316

REACTIONS (3)
  - ASTHENIA [None]
  - CATHETER RELATED COMPLICATION [None]
  - GASTRIC ULCER HAEMORRHAGE [None]
